FAERS Safety Report 23626908 (Version 1)
Quarter: 2024Q1

REPORT INFORMATION
  Report Type: Spontaneous
  Country: CN (occurrence: CN)
  Receive Date: 20240313
  Receipt Date: 20240313
  Transmission Date: 20240409
  Serious: Yes (Other)
  Sender: FDA-Public Use
  Company Number: CN-PFIZER INC-PV202400033721

PATIENT
  Age: 24 Year
  Sex: Female
  Weight: 85 kg

DRUGS (4)
  1. HEMABATE [Suspect]
     Active Substance: CARBOPROST TROMETHAMINE
     Indication: Uterine hypotonus
     Dosage: 250 UG, 1X/DAY
     Route: 015
     Dates: start: 20240301, end: 20240301
  2. ROPIVACAINE HYDROCHLORIDE [Concomitant]
     Active Substance: ROPIVACAINE HYDROCHLORIDE
     Indication: Anaesthesia procedure
     Dosage: 17 MG, 1X/DAY
     Dates: start: 20240301, end: 20240301
  3. OXYTOCIN [Concomitant]
     Active Substance: OXYTOCIN
     Indication: Uterine hypotonus
     Dosage: 20U, 1X/DAY
     Route: 041
     Dates: start: 20240301, end: 20240301
  4. METARAMINOL BITARTRATE [Concomitant]
     Active Substance: METARAMINOL BITARTRATE
     Indication: Blood pressure decreased
     Dosage: 0.5 MG, 1X/DAY
     Route: 042
     Dates: start: 20240301, end: 20240301

REACTIONS (6)
  - Chest discomfort [Recovered/Resolved]
  - Headache [Recovered/Resolved]
  - Arrhythmia [Recovered/Resolved]
  - Dysphoria [Recovered/Resolved]
  - Hypertension [Recovered/Resolved]
  - Off label use [Unknown]

NARRATIVE: CASE EVENT DATE: 20240301
